FAERS Safety Report 4576917-4 (Version None)
Quarter: 2005Q1

REPORT INFORMATION
  Report Type: 
  Country: None (occurrence: None)
  Receive Date: 20050208
  Receipt Date: 20050131
  Transmission Date: 20050727
  Serious: No
  Sender: FDA-Public Use
  Company Number: 2005UW01726

PATIENT
  Sex: Female

DRUGS (3)
  1. ARIMIDEX [Suspect]
     Dosage: 1 MG QD PO
     Route: 048
  2. DOXORUBICIN HCL [Suspect]
     Dates: start: 19980101
  3. FEMARA [Suspect]

REACTIONS (1)
  - CARDIOMYOPATHY [None]
